FAERS Safety Report 10039342 (Version 2)
Quarter: 2014Q1

REPORT INFORMATION
  Report Type: Spontaneous
  Country: US (occurrence: US)
  Receive Date: 20140326
  Receipt Date: 20140326
  Transmission Date: 20141002
  Serious: No
  Sender: FDA-Public Use
  Company Number: US-PFIZER INC-2014072080

PATIENT
  Age: 40 Year
  Sex: Female

DRUGS (8)
  1. LYRICA [Suspect]
     Indication: ARTHRALGIA
     Dosage: 75 MG, DAILY
  2. LYRICA [Suspect]
     Indication: SWELLING
     Dosage: 75 MG, 2X/DAY
  3. TYLENOL [Concomitant]
     Dosage: 650 MG, UNK
  4. FLEXERIL [Concomitant]
     Dosage: 10 MG, UNK
  5. NEURONTIN [Concomitant]
     Dosage: 300 MG, UNK
  6. MULTIVITAMINS, PLAIN [Concomitant]
     Dosage: UNK
  7. ULTRAM [Concomitant]
     Dosage: 50 MG, UNK
  8. TURMERIC ROOT EXTRACT [Concomitant]
     Dosage: 500 MG, UNK

REACTIONS (3)
  - Osteoarthritis [Unknown]
  - Bursitis [Unknown]
  - Antinuclear antibody positive [Unknown]
